FAERS Safety Report 8615290-9 (Version None)
Quarter: 2012Q3

REPORT INFORMATION
  Report Type: 
  Country: None (occurrence: None)
  Receive Date: 20120815
  Receipt Date: 20120815
  Transmission Date: 20120928
  Serious: Yes (Disabling, Other)
  Sender: FDA-Public Use
  Company Number: None

PATIENT
  Age: 2 Year
  Sex: Female
  Weight: 39.0093 kg

DRUGS (1)
  1. CEPHALEXIN [Suspect]
     Indication: BACTERIAL INFECTION
     Dosage: 500MG 3 TIMES DAILY PO
     Route: 048
     Dates: start: 20100519, end: 20100520

REACTIONS (4)
  - FEAR [None]
  - PRURITUS [None]
  - IMPAIRED WORK ABILITY [None]
  - SKIN DISORDER [None]
